FAERS Safety Report 24249459 (Version 1)
Quarter: 2024Q3

REPORT INFORMATION
  Report Type: Spontaneous
  Country: US (occurrence: None)
  Receive Date: 20240823
  Receipt Date: 20240823
  Transmission Date: 20241016
  Serious: Yes (Hospitalization)
  Sender: Public
  Company Number: None

PATIENT
  Age: 13 Year
  Sex: Male
  Weight: 33.6 kg

DRUGS (1)
  1. DUPIXENT [Suspect]
     Active Substance: DUPILUMAB
     Indication: Dermatitis atopic
     Dosage: 200 MG EVERY 2 WEEKS SUBCUTANEOUS ?
     Route: 058
     Dates: start: 20231229, end: 20240816

REACTIONS (5)
  - Helminthic infection [None]
  - Eosinophilia [None]
  - Schistosoma test positive [None]
  - Strongyloides test positive [None]
  - Lymphadenopathy [None]

NARRATIVE: CASE EVENT DATE: 20240816
